FAERS Safety Report 9477793 (Version 4)
Quarter: 2013Q4

REPORT INFORMATION
  Report Type: Spontaneous
  Country: DE (occurrence: DE)
  Receive Date: 20130827
  Receipt Date: 20131003
  Transmission Date: 20140711
  Serious: Yes (Hospitalization)
  Sender: FDA-Public Use
  Company Number: DE-BRISTOL-MYERS SQUIBB COMPANY-19204510

PATIENT
  Age: 51 Year
  Sex: Male

DRUGS (3)
  1. ABILIFY TABS 30 MG [Suspect]
     Dosage: FORMULATION :MAY BE 15 MG OR 30 MG TABS:STARTED WITH 10MG IN 2004 AND THEN INCREASED TO 30MG
     Dates: start: 2004
  2. MAGNESIUM VERLA [Suspect]
  3. HALDOL [Suspect]

REACTIONS (6)
  - Liver injury [Not Recovered/Not Resolved]
  - Musculoskeletal stiffness [Unknown]
  - Chromaturia [Unknown]
  - Abdominal distension [Unknown]
  - Abdominal pain [Unknown]
  - Prescribed overdose [Unknown]
